FAERS Safety Report 13082178 (Version 1)
Quarter: 2017Q1

REPORT INFORMATION
  Report Type: Spontaneous
  Country: US (occurrence: US)
  Receive Date: 20170103
  Receipt Date: 20170103
  Transmission Date: 20170428
  Serious: No
  Sender: FDA-Public Use
  Company Number: US-009507513-1612USA010766

PATIENT
  Sex: Female

DRUGS (3)
  1. SINEMET [Suspect]
     Active Substance: CARBIDOPA\LEVODOPA
     Dosage: UNK
     Route: 048
  2. NORTHERA [Suspect]
     Active Substance: DROXIDOPA
     Dosage: 100 MG, TID
  3. NORTHERA [Suspect]
     Active Substance: DROXIDOPA
     Dosage: 100 MG ONCE A DAY

REACTIONS (2)
  - Diarrhoea [Unknown]
  - Anal incontinence [Unknown]

NARRATIVE: CASE EVENT DATE: 20161206
